FAERS Safety Report 7222247-1 (Version None)
Quarter: 2011Q1

REPORT INFORMATION
  Report Type: 
  Country: None (occurrence: None)
  Receive Date: 20110112
  Receipt Date: 20110104
  Transmission Date: 20110831
  Serious: Yes (Hospitalization)
  Sender: FDA-Public Use
  Company Number: FR-MERCK-1101FRA00008

PATIENT
  Age: 53 Year
  Sex: Female

DRUGS (12)
  1. PRIMAXIN [Suspect]
     Route: 042
     Dates: start: 20101205, end: 20101207
  2. HYDROCORTISONE HEMISUCCINATE [Concomitant]
     Route: 065
  3. CIPROFLOXACIN HYDROCHLORIDE [Suspect]
     Route: 065
     Dates: start: 20101207, end: 20101209
  4. CIPROFLOXACIN HYDROCHLORIDE [Suspect]
     Route: 042
     Dates: start: 20101127, end: 20101205
  5. PIPERACILLIN SODIUM AND TAZOBACTAM SODIUM [Suspect]
     Route: 042
     Dates: start: 20101126, end: 20101205
  6. SUFENTANIL CITRATE [Concomitant]
     Route: 065
  7. MIDAZOLAM [Concomitant]
     Route: 065
  8. ENOXAPARIN SODIUM [Concomitant]
     Route: 065
  9. CLAVULANATE POTASSIUM AND TICARCILLIN DISODIUM [Concomitant]
     Route: 042
     Dates: start: 20101207, end: 20101209
  10. FUROSEMIDE [Concomitant]
     Route: 065
  11. NOREPINEPHRINE [Concomitant]
     Route: 065
  12. AMIKACIN SULFATE [Suspect]
     Route: 065
     Dates: start: 20101126, end: 20101129

REACTIONS (3)
  - ERYTHEMA [None]
  - DERMATITIS BULLOUS [None]
  - RASH MACULO-PAPULAR [None]
